FAERS Safety Report 6718099-6 (Version None)
Quarter: 2010Q2

REPORT INFORMATION
  Report Type: 
  Country: None (occurrence: None)
  Receive Date: 20100510
  Receipt Date: 20100428
  Transmission Date: 20101027
  Serious: Yes (Death, Congenital Anomaly)
  Sender: FDA-Public Use
  Company Number: A0851709A

PATIENT
  Sex: Male

DRUGS (7)
  1. PAXIL CR [Suspect]
     Indication: DRUG USE FOR UNKNOWN INDICATION
     Dates: start: 20040530
  2. LEVAQUIN [Concomitant]
  3. PROMETHAZINE [Concomitant]
  4. ALBUTEROL [Concomitant]
  5. VITAMIN AND MINERAL PRENATAL SUPPLEMENT W/ FOLIC ACID CAP [Concomitant]
  6. BUPROPION HCL [Concomitant]
  7. ZITHROMAX [Concomitant]

REACTIONS (6)
  - DEATH [None]
  - DRUG EXPOSURE DURING PREGNANCY [None]
  - DUCTUS ARTERIOSUS PREMATURE CLOSURE [None]
  - LUNG DISORDER [None]
  - PULMONARY HYPOPLASIA [None]
  - RIGHT VENTRICULAR HYPERTROPHY [None]
